FAERS Safety Report 9439925 (Version 1)
Quarter: 2013Q3

REPORT INFORMATION
  Report Type: Spontaneous
  Country: TW (occurrence: TW)
  Receive Date: 20130805
  Receipt Date: 20130805
  Transmission Date: 20140515
  Serious: Yes (Other)
  Sender: FDA-Public Use
  Company Number: TW-GENZYME-POMP-1003171

PATIENT
  Age: 4 Year
  Sex: Male
  Weight: 14.1 kg

DRUGS (1)
  1. MYOZYME [Suspect]
     Indication: GLYCOGEN STORAGE DISEASE TYPE II
     Dosage: UNK
     Route: 042
     Dates: start: 20060705

REACTIONS (1)
  - Sleep apnoea syndrome [Not Recovered/Not Resolved]
